FAERS Safety Report 6301839-8 (Version None)
Quarter: 2009Q3

REPORT INFORMATION
  Report Type: 
  Country: None (occurrence: None)
  Receive Date: 20090807
  Receipt Date: 20090724
  Transmission Date: 20100115
  Serious: Yes (Hospitalization)
  Sender: FDA-Public Use
  Company Number: US-ROCHE-589156

PATIENT
  Sex: Male
  Weight: 88.2 kg

DRUGS (33)
  1. PEG-INTERFERON ALFA 2A (RO 25-8310) [Suspect]
     Dosage: LAST DOSE PRIOR TO SAE: 22 SEPTEMBER 2008
     Route: 058
     Dates: start: 20080204, end: 20080929
  2. BLINDED RO 4588161 (HCV POLYMERASE INH) [Suspect]
     Dosage: DOSE BLINDED, DOSE PRIOR TO SAE: 12 MAY 2008
     Route: 048
     Dates: start: 20080204
  3. RIBAVIRIN [Suspect]
     Route: 048
     Dates: start: 20080204, end: 20080926
  4. CLONAZEPAM [Concomitant]
  5. CLONAZEPAM [Concomitant]
     Dates: start: 20080927, end: 20081003
  6. ENALAPRIL MALEATE [Concomitant]
  7. FLOMAX [Concomitant]
     Dates: start: 20080904, end: 20081003
  8. OMEPRAZOLE [Concomitant]
  9. AMBIEN [Concomitant]
  10. DILAUDID [Concomitant]
     Dosage: REPORTED AS TOTAL DAILY DOSE 0.2 MG RPN.
     Dates: start: 20080927, end: 20081001
  11. REGULAR INSULIN [Concomitant]
     Dosage: UNIT IS REPORTED AS ^UNITS^.
     Dates: start: 20080929, end: 20081002
  12. PROTONIX [Concomitant]
     Route: 042
     Dates: start: 20080927, end: 20081003
  13. REGLAN [Concomitant]
     Route: 042
     Dates: start: 20080927, end: 20080930
  14. ZOFRAN [Concomitant]
     Route: 042
     Dates: start: 20080927, end: 20080930
  15. FLOMAX [Concomitant]
     Dates: start: 20080928, end: 20081003
  16. MEPROLOL [Concomitant]
     Dates: start: 20080928, end: 20081003
  17. PRIMAXIN [Concomitant]
     Dates: start: 20080928, end: 20080929
  18. ACETAMINOPHEN [Concomitant]
     Route: 048
     Dates: start: 20080928, end: 20081001
  19. ACYCLOVIR [Concomitant]
     Route: 048
     Dates: start: 20080929, end: 20081003
  20. BACTRIM DS [Concomitant]
     Route: 048
     Dates: start: 20080929, end: 20081001
  21. ZOSYN [Concomitant]
     Route: 042
     Dates: start: 20080930, end: 20081002
  22. VANCOMYCIN [Concomitant]
     Route: 042
     Dates: start: 20080930, end: 20081002
  23. VANCOMYCIN [Concomitant]
     Route: 042
     Dates: start: 20090624, end: 20090628
  24. IMIPENEM [Concomitant]
     Route: 042
     Dates: start: 20080930, end: 20080930
  25. SOLU-MEDROL [Concomitant]
     Route: 042
     Dates: start: 20081001, end: 20081003
  26. LASIX [Concomitant]
     Route: 042
     Dates: start: 20081001, end: 20081001
  27. XOPENEX [Concomitant]
     Dates: start: 20081001, end: 20081003
  28. ATROVENT [Concomitant]
     Dates: start: 20081001, end: 20081003
  29. MAGNESIUM [Concomitant]
     Dates: start: 20081002, end: 20081002
  30. GLIPIZIDE [Concomitant]
  31. DULCOLAX [Concomitant]
  32. TRAMADOL HCL [Concomitant]
  33. VICODIN [Concomitant]
     Dates: start: 20090611, end: 20090611

REACTIONS (3)
  - CHOLECYSTITIS ACUTE [None]
  - PANCREATIC PSEUDOCYST [None]
  - PANCREATITIS ACUTE [None]
